FAERS Safety Report 21263140 (Version 1)
Quarter: 2022Q3

REPORT INFORMATION
  Report Type: Spontaneous
  Country: DE (occurrence: DE)
  Receive Date: 20220828
  Receipt Date: 20220828
  Transmission Date: 20221027
  Serious: Yes (Other)
  Sender: FDA-Public Use
  Company Number: de-merck healthcare kgaa-9340232

PATIENT

DRUGS (13)
  1. NUCYNTA [Interacting]
     Active Substance: TAPENTADOL HYDROCHLORIDE
     Indication: Product used for unknown indication
     Dosage: 50 MILLIGRAM, EVERY 8 HRS
     Route: 065
  2. HERBALS [Interacting]
     Active Substance: HERBALS
     Indication: Product used for unknown indication
     Dosage: UNK, 4/DAY
     Route: 065
  3. DOXEPIN [Interacting]
     Active Substance: DOXEPIN
     Indication: Product used for unknown indication
     Dosage: 5 MILLIGRAM, 1/DAY
     Route: 065
  4. BACLOFEN [Interacting]
     Active Substance: BACLOFEN
     Indication: Product used for unknown indication
     Dosage: UNK, UNK (AS NEEDED)
     Route: 065
  5. TROSPIUM CHLORIDE [Interacting]
     Active Substance: TROSPIUM CHLORIDE
     Indication: Product used for unknown indication
     Dosage: 45 MILLIGRAM, 1/DAY
     Route: 065
  6. GLUCOPHAGE [Interacting]
     Active Substance: METFORMIN HYDROCHLORIDE
     Indication: Type 2 diabetes mellitus
     Dosage: 0.5 DOSAGE FORM, 2/DAY
     Route: 065
  7. PANTOPRAZOLE [Interacting]
     Active Substance: PANTOPRAZOLE
     Indication: Product used for unknown indication
     Dosage: 20 MILLIGRAM, 1/DAY
     Route: 065
  8. GABAPENTIN [Interacting]
     Active Substance: GABAPENTIN
     Indication: Product used for unknown indication
     Dosage: 800 MILLIGRAM, EVERY 8 HRS
     Route: 065
  9. BISACODYL [Interacting]
     Active Substance: BISACODYL
     Indication: Product used for unknown indication
     Dosage: 10 DROP, UNKNOWN
     Route: 065
  10. VALSARTAN [Interacting]
     Active Substance: VALSARTAN
     Indication: Product used for unknown indication
     Dosage: UNK UNK, 2/DAY
     Route: 065
  11. LEVOTHYROXINE SODIUM [Interacting]
     Active Substance: LEVOTHYROXINE SODIUM
     Indication: Product used for unknown indication
     Dosage: UNK UNK, UNKNOWN
     Route: 065
  12. ALLOPURINOL [Interacting]
     Active Substance: ALLOPURINOL
     Indication: Product used for unknown indication
     Dosage: 100 MILLIGRAM, 1/DAY
     Route: 065
  13. POTASSIUM TARTRATE\SODIUM BICARBONATE [Interacting]
     Active Substance: POTASSIUM TARTRATE\SODIUM BICARBONATE
     Indication: Product used for unknown indication
     Dosage: UNK UNK, UNKNOWN
     Route: 065

REACTIONS (13)
  - Autoimmune thyroiditis [Unknown]
  - Polyarthritis [Unknown]
  - Muscle spasticity [Unknown]
  - Urine analysis abnormal [Unknown]
  - Illness [Unknown]
  - Sensory disturbance [Unknown]
  - Blood glucose increased [Unknown]
  - Back pain [Not Recovered/Not Resolved]
  - Neuralgia [Not Recovered/Not Resolved]
  - Scar [Unknown]
  - Drug interaction [Unknown]
  - Hypertension [Unknown]
  - Wrong technique in product usage process [Unknown]
